FAERS Safety Report 5006175-8 (Version None)
Quarter: 2006Q1

REPORT INFORMATION
  Report Type: 
  Country: None (occurrence: None)
  Receive Date: 20060327
  Receipt Date: 20060221
  Transmission Date: 20060701
  Serious: No
  Sender: FDA-Public Use
  Company Number: 222571

PATIENT

DRUGS (1)
  1. AVASTIN [Suspect]
     Dosage: 1000 MG

REACTIONS (1)
  - PAIN IN EXTREMITY [None]
